FAERS Safety Report 17914565 (Version 1)
Quarter: 2020Q2

REPORT INFORMATION
  Report Type: Spontaneous
  Country: SE (occurrence: SE)
  Receive Date: 20200619
  Receipt Date: 20200619
  Transmission Date: 20200714
  Serious: Yes (Life-Threatening)
  Sender: FDA-Public Use
  Company Number: SE-TEVA-2020-SE-1788256

PATIENT
  Age: 17 Year
  Sex: Female

DRUGS (5)
  1. CERAZETTE [Concomitant]
  2. IBUPROFEN. [Suspect]
     Active Substance: IBUPROFEN
     Indication: PYREXIA
     Route: 048
     Dates: start: 20200427, end: 20200430
  3. LORATADINE. [Suspect]
     Active Substance: LORATADINE
     Indication: HYPERSENSITIVITY
     Dosage: DOSAGE ^1^, 10 MG
     Dates: start: 20200428, end: 20200428
  4. BAMYL KOFFEIN [Suspect]
     Active Substance: ASPIRIN\CAFFEINE
     Indication: PYREXIA
     Dosage: DOSAGE A LITTLE SIP
     Route: 048
     Dates: start: 20200427, end: 20200427
  5. ALVEDON 500 MG FILMDRAGERAD TABLETT [Suspect]
     Active Substance: ACETAMINOPHEN
     Indication: PYREXIA
     Route: 048
     Dates: start: 20200427, end: 20200501

REACTIONS (1)
  - Toxic epidermal necrolysis [Not Recovered/Not Resolved]

NARRATIVE: CASE EVENT DATE: 20200426
